FAERS Safety Report 8570714-0 (Version None)
Quarter: 2012Q3

REPORT INFORMATION
  Report Type: 
  Country: None (occurrence: None)
  Receive Date: 20120805
  Receipt Date: 20120531
  Transmission Date: 20120928
  Serious: No
  Sender: FDA-Public Use
  Company Number: US-009507513-2012SP028651

PATIENT

DRUGS (3)
  1. CLARITIN-D [Suspect]
     Indication: RESPIRATORY TRACT CONGESTION
     Dosage: 5 MG, Q12H
     Route: 048
     Dates: start: 20120331
  2. CLARITIN-D [Suspect]
     Indication: MEDICAL OBSERVATION
  3. CLARITIN-D [Suspect]
     Indication: HYPERSENSITIVITY

REACTIONS (1)
  - NO THERAPEUTIC RESPONSE [None]
